FAERS Safety Report 8796258 (Version 3)
Quarter: 2013Q2

REPORT INFORMATION
  Report Type: Spontaneous
  Country: US (occurrence: US)
  Receive Date: 20120920
  Receipt Date: 20130614
  Transmission Date: 20140414
  Serious: Yes (Hospitalization)
  Sender: FDA-Public Use
  Company Number: US-BAYER-2012-096862

PATIENT
  Age: 51 Year
  Sex: Female

DRUGS (26)
  1. YASMIN [Suspect]
  2. PREMARIN [Concomitant]
  3. SEREVENT [Concomitant]
  4. FLOVENT [Concomitant]
  5. ALBUTEROL [Concomitant]
  6. LEVOTHYROXINE [Concomitant]
     Dosage: 0.075 MG, UNK ONE TABLET EVERY OTHER DAY ALTERNATING WITH 88 MCG
     Route: 048
     Dates: start: 20080906
  7. AMOXICILLIN [Concomitant]
     Dosage: 500 MG, ONE CAPSULE FOUR TMES A DAY
     Route: 048
     Dates: start: 20081008
  8. HYDROCODONE W/APAP [Concomitant]
     Dosage: 7.5/750 MG TABS EVERY 4 TO 6 HOURS AS NEEDED
     Route: 048
     Dates: start: 20081008
  9. HYDROCODONE W/APAP [Concomitant]
     Dosage: UNK
     Dates: start: 20081010
  10. VICODIN ES [Concomitant]
     Dosage: 1 TABLET EVERY 4 TO 6 HOURS AS NEEDED
     Route: 048
     Dates: start: 20081011
  11. NAFTIN [Concomitant]
     Dosage: 30 G, UNK
     Route: 061
     Dates: start: 20081021
  12. TERBINAFINE [Concomitant]
     Dosage: 250 MG, 1 TABLET EVERY DAY
     Route: 048
     Dates: start: 20081024
  13. DRUGS FOR OBSTRUCTIVE AIRWAY DISEASES [Concomitant]
     Dosage: 2 PUFFS EVERY 4 HOURS
     Route: 045
     Dates: start: 20081115
  14. PREDNISONE [Concomitant]
     Dosage: 20 MG, TABLETS 3 TS QD (INTERPRETED AS 3 TABLETS EVERY DAY) FOR 5 DAYS
     Route: 048
     Dates: start: 20081115
  15. AZITHROMYCIN [Concomitant]
     Dosage: 500 MG,TAKE ONE T D (INTERPRETED AS TABLET DAILY)
     Route: 048
     Dates: start: 20081115
  16. SKELAXIN [Concomitant]
     Dosage: 800 MG, TID, DAILY
     Route: 048
     Dates: start: 20081115
  17. SERTRALINE [Concomitant]
  18. ESOMEPRAZOLE [Concomitant]
  19. NYSTATIN [Concomitant]
  20. DOCUSATE [Concomitant]
  21. IPRATROPIUM [Concomitant]
  22. LORATADIN [Concomitant]
  23. SEASONIQUE [Concomitant]
  24. INFLUENZA VACCINE [Concomitant]
  25. PARAFFIN, LIQUID [Concomitant]
  26. LASIX [Concomitant]
     Indication: OEDEMA

REACTIONS (5)
  - Pulmonary embolism [None]
  - Vena cava thrombosis [None]
  - Pelvic venous thrombosis [None]
  - Deep vein thrombosis [None]
  - Off label use [None]
